FAERS Safety Report 4460517-0 (Version None)
Quarter: 2004Q3

REPORT INFORMATION
  Report Type: 
  Country: None (occurrence: None)
  Receive Date: 20040923
  Receipt Date: 20040909
  Transmission Date: 20050211
  Serious: No
  Sender: FDA-Public Use
  Company Number: 2004SE05031

PATIENT
  Age: 54 Year
  Sex: 0
  Weight: 92 kg

DRUGS (4)
  1. AMIAS [Suspect]
     Indication: CORONARY ARTERY DISEASE
     Dosage: DAILY DOSE: 8MG
     Dates: start: 20040101, end: 20040101
  2. RAMIPRIL [Suspect]
     Indication: CORONARY ARTERY DISEASE
     Dosage: DAILY DOSE: 10MG
     Dates: start: 20010101, end: 20040101
  3. PRAVASTATIN [Concomitant]
  4. ASPIRIN [Concomitant]

REACTIONS (4)
  - INFECTION [None]
  - RASH GENERALISED [None]
  - RASH PAPULAR [None]
  - RASH PRURITIC [None]
